FAERS Safety Report 11052130 (Version 1)
Quarter: 2015Q2

REPORT INFORMATION
  Report Type: Spontaneous
  Country: FR (occurrence: FR)
  Receive Date: 20150421
  Receipt Date: 20150421
  Transmission Date: 20150821
  Serious: Yes (Hospitalization)
  Sender: FDA-Public Use
  Company Number: FR-TEVA-556134ISR

PATIENT
  Age: 65 Year
  Sex: Female

DRUGS (8)
  1. TRAMADOL 50 MG [Concomitant]
     Active Substance: TRAMADOL
     Indication: PAIN
     Dosage: 4 DOSAGE FORMS DAILY; IN CASE OF PAIN
     Dates: start: 201411, end: 20150319
  2. GEMZAR [Suspect]
     Active Substance: GEMCITABINE HYDROCHLORIDE
     Indication: CHOLANGIOCARCINOMA
     Dosage: POWDER FOR SOLUTION FOR INFUSION
     Route: 042
     Dates: start: 201412, end: 20150206
  3. OXALIPLATINE TEVA 5MG/ML [Suspect]
     Active Substance: OXALIPLATIN
     Indication: CHOLANGIOCARCINOMA
     Dosage: 3 COURSES
     Route: 042
     Dates: start: 201412, end: 20150206
  4. CYMBALTA [Suspect]
     Active Substance: DULOXETINE HYDROCHLORIDE
     Dosage: 1 DOSAGE FORMS DAILY; GASTRO-RESISTANT CAPSULE
     Route: 048
     Dates: start: 201411, end: 20150323
  5. LYSANXIA 10 MG [Suspect]
     Active Substance: PRAZEPAM
     Dosage: 20 MILLIGRAM DAILY;
     Route: 048
     Dates: start: 201411, end: 20150319
  6. MOVICOL [Concomitant]
     Active Substance: POLYETHYLENE GLYCOL 3350\POTASSIUM CHLORIDE\SODIUM BICARBONATE\SODIUM CHLORIDE
     Dosage: 2 DOSAGE FORMS DAILY; IF NEEDED
     Dates: start: 201411
  7. PRIMPERAN [Concomitant]
     Active Substance: METOCLOPRAMIDE HYDROCHLORIDE
     Dosage: 1 TABLET BEFORE EACH MEAL
     Dates: start: 201411
  8. IMOVANE [Concomitant]
     Active Substance: ZOPICLONE
     Dosage: .5 DOSAGE FORMS DAILY;
     Dates: start: 201411

REACTIONS (4)
  - Bradyphrenia [Not Recovered/Not Resolved]
  - Encephalopathy [Not Recovered/Not Resolved]
  - Disorientation [Not Recovered/Not Resolved]
  - Hallucination [Not Recovered/Not Resolved]

NARRATIVE: CASE EVENT DATE: 201503
